FAERS Safety Report 9434002 (Version 1)
Quarter: 2013Q3

REPORT INFORMATION
  Report Type: Report from Study
  Country: BE (occurrence: BE)
  Receive Date: 20130801
  Receipt Date: 20130801
  Transmission Date: 20140515
  Serious: Yes (Other)
  Sender: FDA-Public Use
  Company Number: BE-ROCHE-1255566

PATIENT
  Age: 53 Year
  Sex: Female
  Weight: 55 kg

DRUGS (4)
  1. AVASTIN [Suspect]
     Indication: COLON CANCER METASTATIC
     Route: 065
     Dates: start: 20121011, end: 20121112
  2. FOLINIC ACID [Concomitant]
     Indication: COLON CANCER METASTATIC
  3. 5-FU [Concomitant]
     Indication: COLON CANCER METASTATIC
  4. IRINOTECAN [Concomitant]
     Indication: COLON CANCER METASTATIC

REACTIONS (1)
  - Toxicity to various agents [Unknown]
